FAERS Safety Report 14419715 (Version 1)
Quarter: 2018Q1

REPORT INFORMATION
  Report Type: Report from Study
  Country: US (occurrence: US)
  Receive Date: 20180122
  Receipt Date: 20180122
  Transmission Date: 20180509
  Serious: Yes (Hospitalization)
  Sender: FDA-Public Use
  Company Number: PHHO2018US001039

PATIENT
  Sex: Female
  Weight: 66.1 kg

DRUGS (5)
  1. AFINITOR [Suspect]
     Active Substance: EVEROLIMUS
     Indication: BREAST CANCER
     Dosage: CODE NOT BROKEN
     Route: 048
     Dates: start: 20171113, end: 20171227
  2. BLINDED PLACEBO [Suspect]
     Active Substance: INVESTIGATIONAL PRODUCT
     Indication: BREAST CANCER
     Dosage: CODE NOT BROKEN
     Route: 048
     Dates: start: 20171113, end: 20171227
  3. BLINDED NO TREATMENT RECEIVED [Suspect]
     Active Substance: INVESTIGATIONAL PRODUCT
     Indication: BREAST CANCER
     Dosage: CODE NOT BROKEN
     Route: 048
     Dates: start: 20171113, end: 20171227
  4. ARIMIDEX [Concomitant]
     Active Substance: ANASTROZOLE
     Indication: BREAST CANCER
     Dosage: 202.5 SEC, UNK
     Route: 065
     Dates: start: 20171023, end: 20180104
  5. ZOLADEX [Concomitant]
     Active Substance: GOSERELIN ACETATE
     Indication: BREAST CANCER
     Dosage: 10.8 MG, UNK
     Route: 065
     Dates: start: 20171023, end: 20180103

REACTIONS (4)
  - Immunodeficiency [Recovered/Resolved]
  - Postoperative wound infection [Recovered/Resolved]
  - Sepsis [Recovered/Resolved]
  - Breast cellulitis [Recovered/Resolved]

NARRATIVE: CASE EVENT DATE: 20180105
